FAERS Safety Report 13256521 (Version 1)
Quarter: 2017Q1

REPORT INFORMATION
  Report Type: Spontaneous
  Country: BR (occurrence: BR)
  Receive Date: 20170221
  Receipt Date: 20170221
  Transmission Date: 20170428
  Serious: Yes (Other)
  Sender: FDA-Public Use
  Company Number: BR-PFIZER INC-2017071692

PATIENT
  Sex: Female

DRUGS (1)
  1. EFFEXOR XR [Suspect]
     Active Substance: VENLAFAXINE HYDROCHLORIDE
     Indication: MENOPAUSE
     Dosage: UNK
     Route: 048
     Dates: start: 20161217, end: 201612

REACTIONS (24)
  - Chills [Unknown]
  - Gastrointestinal disorder [Unknown]
  - Pruritus generalised [Unknown]
  - Disorientation [Unknown]
  - Abdominal discomfort [Unknown]
  - Eye swelling [Unknown]
  - Abdominal pain upper [Unknown]
  - Eye pruritus [Unknown]
  - Dysphagia [Unknown]
  - Swelling face [Unknown]
  - Altered state of consciousness [Unknown]
  - Headache [Unknown]
  - Dry eye [Unknown]
  - Dry throat [Unknown]
  - Feeling abnormal [Unknown]
  - Insomnia [Unknown]
  - Nervousness [Unknown]
  - Dry mouth [Unknown]
  - Cognitive disorder [Unknown]
  - Diarrhoea [Unknown]
  - Erythema [Unknown]
  - Peripheral coldness [Unknown]
  - Cough [Unknown]
  - Decreased appetite [Unknown]

NARRATIVE: CASE EVENT DATE: 20161217
